FAERS Safety Report 18068687 (Version 1)
Quarter: 2020Q3

REPORT INFORMATION
  Report Type: Spontaneous
  Country: CN (occurrence: CN)
  Receive Date: 20200724
  Receipt Date: 20200724
  Transmission Date: 20201103
  Serious: Yes (Hospitalization)
  Sender: FDA-Public Use
  Company Number: CN-PFIZER INC-2020280913

PATIENT
  Age: 12 Month
  Sex: Male
  Weight: 9.3 kg

DRUGS (3)
  1. SOLU?MEDROL [Suspect]
     Active Substance: METHYLPREDNISOLONE SODIUM SUCCINATE
     Indication: ENTERITIS
     Dosage: 5 MG/KG, 1X/DAY
     Route: 041
     Dates: start: 20200704, end: 20200706
  2. SOLU?MEDROL [Suspect]
     Active Substance: METHYLPREDNISOLONE SODIUM SUCCINATE
     Dosage: 2 MG/KG, 1X/DAY
     Route: 041
     Dates: start: 20200707, end: 20200709
  3. GLUCOSE [Suspect]
     Active Substance: DEXTROSE
     Indication: ENTERITIS
     Dosage: 30 ML, 1X/DAY
     Route: 041
     Dates: start: 20200704, end: 20200709

REACTIONS (3)
  - Neutrophil count increased [Recovering/Resolving]
  - Platelet count increased [Unknown]
  - White blood cell count increased [Recovering/Resolving]

NARRATIVE: CASE EVENT DATE: 20200705
